FAERS Safety Report 14149122 (Version 2)
Quarter: 2017Q4

REPORT INFORMATION
  Report Type: Spontaneous
  Country: JP (occurrence: JP)
  Receive Date: 20171101
  Receipt Date: 20171127
  Transmission Date: 20180321
  Serious: Yes (Other)
  Sender: FDA-Public Use
  Company Number: JP-PFIZER INC-2017462869

PATIENT
  Age: 53 Year
  Sex: Female
  Weight: 69.7 kg

DRUGS (9)
  1. OLANZAPINE. [Concomitant]
     Active Substance: OLANZAPINE
     Dosage: 10 MG, DAILY
     Route: 048
  2. DEPAKENE [Concomitant]
     Active Substance: VALPROIC ACID
     Indication: AFFECTIVE DISORDER
     Dosage: 400 MG, DAILY
     Route: 048
  3. LONASEN [Concomitant]
     Active Substance: BLONANSERIN
     Dosage: 24 MG, DAILY
     Route: 048
  4. HIRNAMIN [Concomitant]
     Active Substance: PHENOTHIAZINE
     Dosage: 50 MG, DAILY
     Route: 048
  5. TASMOLIN [Concomitant]
     Active Substance: BIPERIDEN
     Dosage: 1 MG, DAILY
     Route: 048
  6. NAUZELIN [Concomitant]
     Active Substance: DOMPERIDONE
     Dosage: 10 MG, DAILY
     Route: 048
     Dates: start: 20171025, end: 20171027
  7. LOXONIN [Concomitant]
     Active Substance: LOXOPROFEN SODIUM
     Dosage: 60 MG, DAILY
     Route: 048
  8. CHAMPIX 0.5MG [Suspect]
     Active Substance: VARENICLINE TARTRATE
     Indication: SMOKING CESSATION THERAPY
     Dosage: 0.5 MG, DAILY
     Route: 048
     Dates: start: 20171025, end: 20171025
  9. REBAMIPIDE [Concomitant]
     Active Substance: REBAMIPIDE
     Dosage: 100 MG, DAILY
     Route: 048

REACTIONS (8)
  - Tonic convulsion [Recovered/Resolved]
  - Condition aggravated [Recovered/Resolved]
  - Hypertension [Unknown]
  - Heart rate increased [Unknown]
  - Clonic convulsion [Recovered/Resolved]
  - Epilepsy [Recovered/Resolved]
  - Dyspnoea [Unknown]
  - Loss of consciousness [Recovered/Resolved]

NARRATIVE: CASE EVENT DATE: 20171025
